FAERS Safety Report 5322781-5 (Version None)
Quarter: 2007Q2

REPORT INFORMATION
  Report Type: 
  Country: None (occurrence: None)
  Receive Date: 20070511
  Receipt Date: 20070507
  Transmission Date: 20071010
  Serious: Yes (Other)
  Sender: FDA-Public Use
  Company Number: ES-ROXANE LABORATORIES, INC-2007-BP-06193RO

PATIENT
  Age: 43 Year
  Sex: Female

DRUGS (7)
  1. CITALOPRAM HYDROBROMIDE [Suspect]
     Indication: DEPRESSED MOOD
     Dosage: 25 MG DAILY
  2. CLORAZEPATE [Suspect]
     Indication: ANXIETY
     Dosage: 10 MG TID
  3. ZOPICLONA [Suspect]
     Indication: INSOMNIA
     Dosage: 7.5 MG DAILY
  4. TOPIRAMATE [Concomitant]
     Indication: NEURALGIA
     Route: 048
  5. GABAPENTIN [Concomitant]
     Indication: NEURALGIA
     Route: 048
  6. CLONAZEPAM [Concomitant]
     Indication: NEURALGIA
     Route: 048
  7. TRAMADOL HCL [Concomitant]
     Indication: NEURALGIA
     Route: 048

REACTIONS (2)
  - ARTHRITIS [None]
  - RAYNAUD'S PHENOMENON [None]
